FAERS Safety Report 6802703-8 (Version None)
Quarter: 2010Q2

REPORT INFORMATION
  Report Type: 
  Country: None (occurrence: None)
  Receive Date: 20100628
  Receipt Date: 20100617
  Transmission Date: 20101027
  Serious: Yes (Other)
  Sender: FDA-Public Use
  Company Number: BR-ASTRAZENECA-2007UW24911

PATIENT
  Age: 70 Year
  Sex: Male
  Weight: 79 kg

DRUGS (9)
  1. SYMBICORT [Suspect]
     Indication: ASTHMA
     Dosage: 160/4.5 UG
     Route: 055
     Dates: start: 20000101, end: 20100601
  2. SYMBICORT [Suspect]
     Indication: CHRONIC OBSTRUCTIVE PULMONARY DISEASE
     Dosage: 160/4.5 UG
     Route: 055
     Dates: start: 20000101, end: 20100601
  3. METFORMIN HYDROCHLORIDE [Concomitant]
     Indication: DIABETES MELLITUS
     Route: 048
  4. SINVASTATINA [Concomitant]
     Indication: HYPERCHOLESTEROLAEMIA
     Route: 048
  5. FLUOXETINA [Concomitant]
     Indication: ANXIETY
     Route: 048
     Dates: end: 20070901
  6. RIVOTRIL [Concomitant]
     Indication: ANXIETY
     Route: 048
     Dates: end: 20070901
  7. CIPRO [Concomitant]
     Indication: PROSTATIC SPECIFIC ANTIGEN
     Route: 048
  8. EURTHYROX [Concomitant]
     Indication: PROSTATIC SPECIFIC ANTIGEN
     Route: 048
     Dates: start: 20070901
  9. CITALOPRAN [Concomitant]
     Indication: ANXIETY
     Route: 048

REACTIONS (6)
  - APHONIA [None]
  - COUGH [None]
  - DRUG INEFFECTIVE [None]
  - PNEUMONIA [None]
  - PYREXIA [None]
  - WHEEZING [None]
